FAERS Safety Report 9486054 (Version 2)
Quarter: 2013Q4

REPORT INFORMATION
  Report Type: Spontaneous
  Country: US (occurrence: None)
  Receive Date: 20130826
  Receipt Date: 20131126
  Transmission Date: 20140711
  Serious: Yes (Hospitalization)
  Sender: FDA-Public Use
  Company Number: SYM-2013-09111

PATIENT
  Age: 65 Year
  Sex: Male

DRUGS (1)
  1. XENAZINE [Suspect]
     Indication: DYSKINESIA
     Dosage: 2 IN 1 D
     Route: 048
     Dates: start: 201212

REACTIONS (5)
  - Psychotic disorder [None]
  - Therapy cessation [None]
  - Dyskinesia [None]
  - Disease recurrence [None]
  - Dyskinesia [None]
